FAERS Safety Report 12191269 (Version 2)
Quarter: 2016Q3

REPORT INFORMATION
  Report Type: Spontaneous
  Country: AU (occurrence: AU)
  Receive Date: 20160318
  Receipt Date: 20160701
  Transmission Date: 20161109
  Serious: Yes (Life-Threatening, Hospitalization, Other)
  Sender: FDA-Public Use
  Company Number: AU-009507513-1602AUS007129

PATIENT
  Age: 66 Year
  Sex: Female
  Weight: 113 kg

DRUGS (2)
  1. SUGAMMADEX SODIUM [Suspect]
     Active Substance: SUGAMMADEX SODIUM
     Indication: NEUROMUSCULAR BLOCKADE REVERSAL
     Dosage: 200 MG, ONCE
     Route: 042
  2. ROCURONIUM BROMIDE. [Concomitant]
     Active Substance: ROCURONIUM BROMIDE
     Dosage: TOTAL DOSE 185 MG

REACTIONS (2)
  - Drug effect delayed [Recovered/Resolved]
  - Post-traumatic stress disorder [Recovering/Resolving]
